FAERS Safety Report 6711384-3 (Version None)
Quarter: 2010Q2

REPORT INFORMATION
  Report Type: 
  Country: None (occurrence: None)
  Receive Date: 20100505
  Receipt Date: 20100426
  Transmission Date: 20101027
  Serious: Yes (Hospitalization)
  Sender: FDA-Public Use
  Company Number: FR-JNJFOC-20100406501

PATIENT
  Sex: Female

DRUGS (7)
  1. RISPERDAL [Suspect]
     Indication: ABNORMAL BEHAVIOUR
     Route: 048
     Dates: start: 20100203, end: 20100222
  2. PRAXILENE [Concomitant]
     Indication: COGNITIVE DISORDER
     Route: 048
     Dates: start: 20100203
  3. KARDEGIC [Concomitant]
     Indication: ATRIAL FIBRILLATION
     Route: 048
     Dates: start: 20100209, end: 20100219
  4. RIFAMYCINE [Concomitant]
     Indication: EYE INFECTION BACTERIAL
     Route: 047
     Dates: start: 20100211, end: 20100218
  5. MORPHINE SULFATE [Concomitant]
     Indication: PAIN
     Route: 048
     Dates: start: 20100216, end: 20100222
  6. DOLIPRANE [Concomitant]
     Indication: PAIN
     Route: 048
     Dates: start: 20100216, end: 20100308
  7. THERALENE [Concomitant]
     Indication: INSOMNIA
     Route: 048

REACTIONS (4)
  - BRONCHIAL OBSTRUCTION [None]
  - DYSPNOEA [None]
  - PANCYTOPENIA [None]
  - SUPERINFECTION [None]
